FAERS Safety Report 6326228-1 (Version None)
Quarter: 2009Q3

REPORT INFORMATION
  Report Type: 
  Country: None (occurrence: None)
  Receive Date: 20090820
  Receipt Date: 20090810
  Transmission Date: 20100115
  Serious: Yes (Hospitalization)
  Sender: FDA-Public Use
  Company Number: JPI-P-008249

PATIENT
  Age: 57 Year
  Sex: Female

DRUGS (18)
  1. XYREM [Suspect]
     Indication: CATAPLEXY
     Dosage: 9 GM (4.5 GM, 2 IN 1 D), ORAL
     Route: 048
     Dates: start: 20070201
  2. ALPRAZOLAM (PILL) [Concomitant]
  3. ACETYLSALICYLIC ACID (PILL) [Concomitant]
  4. CLOPIDOGREL (PILL) [Concomitant]
  5. FOLIC ACID (PILL) [Concomitant]
  6. FLUNISOLIDE (NASAL DROPS (INCLUDING NASAL SPRAY) [Concomitant]
  7. FLUOXETINE (PILL) [Concomitant]
  8. FUROSEMIDE (PILL) [Concomitant]
  9. GLIMEPIRIDE (PILL) [Concomitant]
  10. METOPROLOL (PILL) [Concomitant]
  11. LEVOTHYROXINE (PILL) [Concomitant]
  12. MODAFINIL (PILL) [Concomitant]
  13. OMEPRAZOLE (PILL) [Concomitant]
  14. POTASSIUM CHLORIDE (PILL) [Concomitant]
  15. SIMVASTATIN (PILL) [Concomitant]
  16. VALSARTAN (PILL) [Concomitant]
  17. PRAMIPEXOLE (PILL) [Concomitant]
  18. ZAFIRLUKAST (PILL) [Concomitant]

REACTIONS (1)
  - PULMONARY EMBOLISM [None]
